FAERS Safety Report 14126546 (Version 1)
Quarter: 2017Q4

REPORT INFORMATION
  Report Type: Spontaneous
  Country: FR (occurrence: FR)
  Receive Date: 20171025
  Receipt Date: 20171025
  Transmission Date: 20180321
  Serious: Yes (Hospitalization)
  Sender: FDA-Public Use
  Company Number: FR-009507513-1710FRA009253

PATIENT
  Age: 88 Year
  Sex: Female

DRUGS (14)
  1. MODURETIC 5-50 [Suspect]
     Active Substance: AMILORIDE HYDROCHLORIDE\HYDROCHLOROTHIAZIDE
     Indication: HYPERTENSION
     Dosage: 20 MG, QD
     Route: 048
     Dates: end: 201708
  2. MOPRAL (OMEPRAZOLE MAGNESIUM) [Suspect]
     Active Substance: OMEPRAZOLE MAGNESIUM
     Indication: PRODUCT USED FOR UNKNOWN INDICATION
     Dosage: FORMULATION: GASTRORESISTANT TABLET; 20 MG, QD
     Route: 048
     Dates: end: 201709
  3. DIFFU-K [Concomitant]
     Active Substance: POTASSIUM CHLORIDE
     Route: 048
  4. DAFALGAN [Concomitant]
     Active Substance: ACETAMINOPHEN
     Route: 048
  5. ELIQUIS [Concomitant]
     Active Substance: APIXABAN
     Route: 048
  6. APROVEL [Concomitant]
     Active Substance: IRBESARTAN
     Route: 048
  7. AMIODARONE HYDROCHLORIDE. [Concomitant]
     Active Substance: AMIODARONE HYDROCHLORIDE
     Route: 048
  8. VALDOXAN [Concomitant]
     Active Substance: AGOMELATINE
     Route: 048
  9. FUROSEMIDE. [Suspect]
     Active Substance: FUROSEMIDE
     Indication: HYPERTENSION
     Dosage: 20 MG, QD
     Route: 048
  10. OROCAL [Concomitant]
     Active Substance: CALCIUM CARBONATE
     Route: 048
  11. LAMALINE [Concomitant]
     Active Substance: ACETAMINOPHEN\CAFFEINE\OPIUM
     Route: 048
  12. ECONAZOLE [Concomitant]
     Active Substance: ECONAZOLE
     Route: 003
  13. TEMESTA (LORAZEPAM) [Concomitant]
     Active Substance: LORAZEPAM
     Route: 048
  14. ADENURIC [Concomitant]
     Active Substance: FEBUXOSTAT
     Route: 048

REACTIONS (2)
  - Hyponatraemia [Not Recovered/Not Resolved]
  - Malaise [Recovered/Resolved]

NARRATIVE: CASE EVENT DATE: 201708
